FAERS Safety Report 21344975 (Version 2)
Quarter: 2022Q3

REPORT INFORMATION
  Report Type: Report from Study
  Country: US (occurrence: None)
  Receive Date: 20220916
  Receipt Date: 20220922
  Transmission Date: 20221027
  Serious: No
  Sender: FDA-Public Use
  Company Number: US-Eisai Medical Research-EC-2022-123612

PATIENT
  Age: 60 Year
  Sex: Male
  Weight: 78.5 kg

DRUGS (17)
  1. LENVATINIB [Suspect]
     Active Substance: LENVATINIB
     Indication: Malignant melanoma
     Dosage: DOSE UNKNOWN
     Route: 048
     Dates: start: 20190408
  2. PEMBROLIZUMAB [Suspect]
     Active Substance: PEMBROLIZUMAB
     Indication: Malignant melanoma
     Dosage: DOSE UNKNOWN
     Route: 042
     Dates: start: 20190408, end: 20201007
  3. PEMBROLIZUMAB [Suspect]
     Active Substance: PEMBROLIZUMAB
     Dosage: DOSE UNKNOWN
     Route: 042
     Dates: start: 20201028
  4. ASCORBIC ACID [Concomitant]
     Active Substance: ASCORBIC ACID
     Dates: start: 20190206
  5. CIMETIDINE [Concomitant]
     Active Substance: CIMETIDINE
     Dates: start: 200401
  6. OMEPRAZOLE [Concomitant]
     Active Substance: OMEPRAZOLE
     Dates: start: 200401
  7. VITAMIN D NOS [Concomitant]
     Active Substance: VITAMIN D NOS
     Dates: start: 201810
  8. CYANOCOBALAMIN [Concomitant]
     Active Substance: CYANOCOBALAMIN
     Dates: start: 201810
  9. LISINOPRIL [Concomitant]
     Active Substance: LISINOPRIL
     Dates: start: 20190429
  10. VALERIAN [Concomitant]
     Active Substance: VALERIAN
     Dates: start: 20190503
  11. AMLODIPINE [Concomitant]
     Active Substance: AMLODIPINE BESYLATE
     Dates: start: 20190520
  12. ACETAMINOPHEN [Concomitant]
     Active Substance: ACETAMINOPHEN
     Dates: start: 20190422
  13. NAPROXEN SODIUM [Concomitant]
     Active Substance: NAPROXEN SODIUM
     Dates: start: 20191016
  14. LEVOTHYROXINE SODIUM [Concomitant]
     Active Substance: LEVOTHYROXINE SODIUM
     Dates: start: 20200210
  15. VOLTAREN [Concomitant]
     Active Substance: DICLOFENAC SODIUM
     Dates: start: 20200210
  16. CRESTOR [Concomitant]
     Active Substance: ROSUVASTATIN CALCIUM
     Dates: start: 20200821, end: 20210811
  17. ASPIRIN [Concomitant]
     Active Substance: ASPIRIN
     Dates: start: 20200821

REACTIONS (1)
  - Coronary artery disease [Not Recovered/Not Resolved]

NARRATIVE: CASE EVENT DATE: 20201015
